FAERS Safety Report 9436442 (Version 2)
Quarter: 2013Q3

REPORT INFORMATION
  Report Type: Spontaneous
  Country: AU (occurrence: AU)
  Receive Date: 20130802
  Receipt Date: 20130814
  Transmission Date: 20140515
  Serious: Yes (Death)
  Sender: FDA-Public Use
  Company Number: AU-AMGEN-AUSSP2013053941

PATIENT
  Sex: Male

DRUGS (1)
  1. SENSIPAR [Suspect]
     Indication: PRODUCT USED FOR UNKNOWN INDICATION
     Dosage: 30 MG, UNK
     Route: 065

REACTIONS (1)
  - Death [Fatal]
